FAERS Safety Report 6496436-8 (Version None)
Quarter: 2009Q4

REPORT INFORMATION
  Report Type: 
  Country: None (occurrence: None)
  Receive Date: 20091125
  Receipt Date: 20081015
  Transmission Date: 20100525
  Serious: Yes (Hospitalization)
  Sender: FDA-Public Use
  Company Number: 2008BH010827

PATIENT
  Age: 46 Year
  Sex: Female

DRUGS (2)
  1. DIANEAL [Suspect]
     Indication: RENAL FAILURE CHRONIC
     Dosage: ; UNK   IP
     Route: 033
     Dates: start: 20071219, end: 20081001
  2. DIANEAL [Suspect]
     Indication: RENAL FAILURE CHRONIC
     Dosage: ; UNK; IP
     Route: 033
     Dates: start: 20071219, end: 20081001

REACTIONS (1)
  - PERITONITIS [None]
